FAERS Safety Report 6068805-1 (Version None)
Quarter: 2009Q1

REPORT INFORMATION
  Report Type: 
  Country: None (occurrence: None)
  Receive Date: 20090206
  Receipt Date: 20090128
  Transmission Date: 20090719
  Serious: Yes (Other)
  Sender: FDA-Public Use
  Company Number: GB-ROCHE-612420

PATIENT
  Sex: Male
  Weight: 139.7 kg

DRUGS (4)
  1. ORLISTAT [Suspect]
     Indication: OBESITY
     Route: 048
     Dates: start: 20080529, end: 20090114
  2. METFORMIN HCL [Concomitant]
     Route: 048
  3. STATIN [Concomitant]
     Route: 048
  4. RAMIPRIL [Concomitant]
     Indication: BLOOD PRESSURE
     Route: 048

REACTIONS (2)
  - CARDIAC FAILURE [None]
  - SYNCOPE [None]
